FAERS Safety Report 4606113-3 (Version None)
Quarter: 2005Q2

REPORT INFORMATION
  Report Type: 
  Country: None (occurrence: None)
  Receive Date: 20050303
  Receipt Date: 20050117
  Transmission Date: 20051028
  Serious: Yes (Other)
  Sender: FDA-Public Use
  Company Number: 200510099BWH

PATIENT

DRUGS (1)
  1. LEVITRA [Suspect]
     Dates: start: 20050116

REACTIONS (1)
  - CHEST PAIN [None]
